FAERS Safety Report 4678733-1 (Version None)
Quarter: 2005Q2

REPORT INFORMATION
  Report Type: 
  Country: None (occurrence: None)
  Receive Date: 20050531
  Receipt Date: 20050517
  Transmission Date: 20051028
  Serious: Yes (Hospitalization, Other)
  Sender: FDA-Public Use
  Company Number: HQWYE784119MAY05

PATIENT
  Age: 1 Day
  Sex: Male
  Weight: 3.86 kg

DRUGS (2)
  1. EFFEXOR XR [Suspect]
     Indication: DEPRESSION
     Dosage: 150 MG 1X PER 1 DAY, ORAL
     Route: 048
     Dates: start: 20020601
  2. TYLENOL SINUS MEDICATION (PARACETAMOL/PSEUDOEPHEDRINE HYDROCHLORIDE) [Concomitant]

REACTIONS (2)
  - DRUG EXPOSURE DURING PREGNANCY [None]
  - TRANSIENT TACHYPNOEA OF THE NEWBORN [None]
